FAERS Safety Report 14871518 (Version 1)
Quarter: 2018Q2

REPORT INFORMATION
  Report Type: Spontaneous
  Country: US (occurrence: US)
  Receive Date: 20180509
  Receipt Date: 20180509
  Transmission Date: 20180711
  Serious: No
  Sender: FDA-Public Use
  Company Number: US-PFIZER INC-2018040908

PATIENT
  Age: 41 Year
  Sex: Female

DRUGS (11)
  1. LYRICA [Suspect]
     Active Substance: PREGABALIN
     Indication: OSTEOARTHRITIS
  2. LYRICA [Suspect]
     Active Substance: PREGABALIN
     Indication: HYPONATRAEMIA
  3. LYRICA [Suspect]
     Active Substance: PREGABALIN
     Indication: HYPOKALAEMIA
  4. LYRICA [Suspect]
     Active Substance: PREGABALIN
     Indication: ANAEMIA
  5. LYRICA [Suspect]
     Active Substance: PREGABALIN
     Indication: OSTEOPENIA
  6. LYRICA [Suspect]
     Active Substance: PREGABALIN
     Indication: INTERVERTEBRAL DISC DISORDER
  7. LYRICA [Suspect]
     Active Substance: PREGABALIN
     Indication: RAYNAUD^S PHENOMENON
  8. LYRICA [Suspect]
     Active Substance: PREGABALIN
     Indication: RHEUMATOID ARTHRITIS
  9. LYRICA [Suspect]
     Active Substance: PREGABALIN
     Indication: SPINAL OSTEOARTHRITIS
     Dosage: 150 MG, UNK
  10. LYRICA [Suspect]
     Active Substance: PREGABALIN
     Indication: RED BLOOD CELL SEDIMENTATION RATE INCREASED
  11. LYRICA [Suspect]
     Active Substance: PREGABALIN
     Indication: INTERVERTEBRAL DISC DISORDER

REACTIONS (1)
  - No adverse event [Unknown]
